FAERS Safety Report 25771651 (Version 1)
Quarter: 2025Q3

REPORT INFORMATION
  Report Type: Spontaneous
  Country: US (occurrence: US)
  Receive Date: 20250908
  Receipt Date: 20250908
  Transmission Date: 20251020
  Serious: No
  Sender: DOMPE FARMACEUTICI
  Company Number: US-FARMAPROD-202505-1537

PATIENT
  Sex: Female

DRUGS (7)
  1. OXERVATE [Suspect]
     Active Substance: CENEGERMIN-BKBJ
     Indication: Neurotrophic keratopathy
     Route: 047
     Dates: start: 20250429
  2. FLAXSEED [Concomitant]
     Active Substance: FLAX SEED
  3. FISH OIL [Concomitant]
     Active Substance: FISH OIL
  4. VEVYE [Concomitant]
     Active Substance: CYCLOSPORINE
  5. VITAMIN C [Concomitant]
     Active Substance: ASCORBIC ACID
  6. NAC [Concomitant]
  7. HYLO NIGHT [Concomitant]

REACTIONS (3)
  - Eye pain [Unknown]
  - Ocular hyperaemia [Unknown]
  - Eye irritation [Unknown]
